FAERS Safety Report 4874226-7 (Version None)
Quarter: 2005Q4

REPORT INFORMATION
  Report Type: 
  Country: None (occurrence: None)
  Receive Date: 20051201
  Receipt Date: 20050808
  Transmission Date: 20060501
  Serious: No
  Sender: FDA-Public Use
  Company Number: 2005PV000996

PATIENT
  Age: 66 Year
  Sex: Male
  Weight: 99.7913 kg

DRUGS (18)
  1. BYETTA [Suspect]
     Indication: DIABETES MELLITUS NON-INSULIN-DEPENDENT
     Dosage: 5 MCG; BID; SC; 10 MCG; BID; SC
     Route: 058
     Dates: start: 20050723, end: 20050825
  2. BYETTA [Suspect]
     Indication: DIABETES MELLITUS NON-INSULIN-DEPENDENT
     Dosage: 5 MCG; BID; SC; 10 MCG; BID; SC
     Route: 058
     Dates: start: 20050826
  3. LANTUS [Concomitant]
  4. ACTOS [Concomitant]
  5. TRICOR [Concomitant]
  6. AVAPRO [Concomitant]
  7. PRILOSEC [Concomitant]
  8. ECOTRIN [Concomitant]
  9. ATENOLOL [Concomitant]
  10. PLAVIX [Concomitant]
  11. FELODIPINE [Concomitant]
  12. LIPITOR [Concomitant]
  13. FOLIC ACID [Concomitant]
  14. METFORMIN HCL [Concomitant]
  15. GLYBURIDE/METFORMIN 5/500 [Concomitant]
  16. AVANDIA [Concomitant]
  17. NOVOLIN [Concomitant]
  18. LESCOL [Concomitant]

REACTIONS (7)
  - DECREASED APPETITE [None]
  - DEPRESSED MOOD [None]
  - DYSGEUSIA [None]
  - ENERGY INCREASED [None]
  - INJECTION SITE IRRITATION [None]
  - THERAPEUTIC RESPONSE UNEXPECTED [None]
  - WEIGHT DECREASED [None]
